FAERS Safety Report 5306193-6 (Version None)
Quarter: 2007Q2

REPORT INFORMATION
  Report Type: 
  Country: None (occurrence: None)
  Receive Date: 20070424
  Receipt Date: 20070420
  Transmission Date: 20071010
  Serious: Yes (Hospitalization)
  Sender: FDA-Public Use
  Company Number: CL-BRISTOL-MYERS SQUIBB COMPANY-13321708

PATIENT
  Age: 89 Year
  Sex: Male
  Weight: 64 kg

DRUGS (5)
  1. IRBESARTAN [Suspect]
     Indication: HYPERTENSION
     Route: 048
     Dates: start: 20050318
  2. BLINDED: PLACEBO [Suspect]
     Indication: HYPERTENSION
     Route: 048
     Dates: start: 20050318
  3. CLOPIDOGREL BISULFATE [Suspect]
     Indication: PROPHYLAXIS
     Dates: start: 20050318
  4. ASPIRIN [Suspect]
     Indication: PROPHYLAXIS
     Route: 047
     Dates: start: 20050318
  5. CLOPIDOGREL BISULFATE [Concomitant]

REACTIONS (1)
  - CONVULSION [None]
